FAERS Safety Report 11633829 (Version 1)
Quarter: 2015Q4

REPORT INFORMATION
  Report Type: Spontaneous
  Country: US (occurrence: US)
  Receive Date: 20151015
  Receipt Date: 20151015
  Transmission Date: 20160304
  Serious: No
  Sender: FDA-Public Use
  Company Number: US-TORRENT-00001001

PATIENT
  Sex: Female

DRUGS (1)
  1. TELMISARTAN AND HYDROCHLOROTHIAZIDE TABLETS (80MG/12.5MG), USP [Suspect]
     Active Substance: HYDROCHLOROTHIAZIDE\TELMISARTAN
     Indication: PRODUCT USED FOR UNKNOWN INDICATION
     Dosage: TELMISARTAN 80MG AND HYDROCHLOROTHIAZIDE 12.5MG

REACTIONS (4)
  - Reaction to drug excipients [None]
  - Documented hypersensitivity to administered product [None]
  - Diarrhoea [Unknown]
  - Vulvovaginal pain [Unknown]
